FAERS Safety Report 8573020-3 (Version None)
Quarter: 2012Q3

REPORT INFORMATION
  Report Type: 
  Country: None (occurrence: None)
  Receive Date: 20120806
  Receipt Date: 20120724
  Transmission Date: 20120928
  Serious: Yes (Other)
  Sender: FDA-Public Use
  Company Number: US-JNJFOC-20120712525

PATIENT
  Age: 30 Year
  Sex: Male

DRUGS (4)
  1. HYDROGEN PEROXIDE SOLUTION [Suspect]
     Indication: ORAL INFECTION
     Dosage: 3 %
     Route: 048
  2. LISTERINE UNSPECIFIED [Suspect]
     Indication: HYPERSENSITIVITY
     Route: 048
  3. LISTERINE UNSPECIFIED [Suspect]
     Indication: ORAL INFECTION
     Route: 048
  4. HYDROGEN PEROXIDE SOLUTION [Suspect]
     Indication: HYPERSENSITIVITY
     Dosage: 3 %
     Route: 048

REACTIONS (4)
  - WRONG TECHNIQUE IN DRUG USAGE PROCESS [None]
  - OFF LABEL USE [None]
  - CHEMICAL BURN OF GASTROINTESTINAL TRACT [None]
  - INCORRECT ROUTE OF DRUG ADMINISTRATION [None]
